FAERS Safety Report 6019171-9 (Version None)
Quarter: 2008Q4

REPORT INFORMATION
  Report Type: 
  Country: None (occurrence: None)
  Receive Date: 20081224
  Receipt Date: 20081215
  Transmission Date: 20090506
  Serious: Yes (Death)
  Sender: FDA-Public Use
  Company Number: US-PFIZER INC-2008153571

PATIENT
  Age: 19 Year
  Sex: Male

DRUGS (5)
  1. SERTRALINE HCL [Suspect]
     Route: 048
  2. QUETIAPINE [Suspect]
     Route: 048
  3. FLUOXETINE HCL [Suspect]
     Route: 048
  4. DEXTROMETHORPHAN [Suspect]
     Route: 048
  5. ALL OTHER THERAPEUTIC PRODUCTS [Suspect]
     Route: 048

REACTIONS (1)
  - DEATH [None]
